FAERS Safety Report 20142030 (Version 1)
Quarter: 2021Q4

REPORT INFORMATION
  Report Type: Report from Study
  Country: ZA (occurrence: ZA)
  Receive Date: 20211202
  Receipt Date: 20211202
  Transmission Date: 20220303
  Serious: Yes (Hospitalization, Other)
  Sender: FDA-Public Use
  Company Number: ZA-BoehringerIngelheim-2021-BI-140543

PATIENT
  Age: 85 Year
  Sex: Female

DRUGS (6)
  1. TELMISARTAN [Suspect]
     Active Substance: TELMISARTAN
     Indication: Hypertension
     Route: 048
  2. NAFASOL [Concomitant]
     Indication: Product used for unknown indication
  3. DONEPEZIL HYDROCHLORIDE [Concomitant]
     Active Substance: DONEPEZIL HYDROCHLORIDE
     Indication: Product used for unknown indication
  4. AMILORETIC [AMILORIDE;HYDROCHLOROTHIAZIDE] [Concomitant]
     Indication: Product used for unknown indication
     Dosage: STRENGTH: 5/50MG
  5. BETACOR [BETAMETHASONE] [Concomitant]
     Indication: Product used for unknown indication
  6. ESCITALOPRAM [Concomitant]
     Active Substance: ESCITALOPRAM OXALATE
     Indication: Product used for unknown indication

REACTIONS (3)
  - Sepsis [Unknown]
  - Infection [Unknown]
  - Rash [Unknown]
